FAERS Safety Report 8557770-0 (Version None)
Quarter: 2012Q3

REPORT INFORMATION
  Report Type: 
  Country: None (occurrence: None)
  Receive Date: 20120801
  Receipt Date: 20120726
  Transmission Date: 20120928
  Serious: Yes (Other)
  Sender: FDA-Public Use
  Company Number: JP-ABBOTT-12P-087-0961067-00

PATIENT
  Age: 46 Year
  Sex: Female

DRUGS (7)
  1. AMOXICILLIN [Suspect]
     Route: 048
     Dates: start: 20110602, end: 20110602
  2. AMOXICILLIN [Suspect]
     Indication: HELICOBACTER INFECTION
     Route: 048
     Dates: start: 20101228, end: 20101228
  3. CLARITHROMYCIN [Suspect]
     Route: 048
     Dates: start: 20110602, end: 20110602
  4. LANSOPRAZOLE [Suspect]
     Route: 048
     Dates: start: 20110602, end: 20110602
  5. LANSOPRAZOLE [Suspect]
     Indication: PRODUCT USED FOR UNKNOWN INDICATION
     Route: 048
     Dates: start: 20110608, end: 20110608
  6. CLARITHROMYCIN [Suspect]
     Indication: HELICOBACTER INFECTION
     Route: 048
     Dates: start: 20101228, end: 20101228
  7. LANSOPRAZOLE [Suspect]
     Indication: HELICOBACTER INFECTION
     Route: 048
     Dates: start: 20101228, end: 20101228

REACTIONS (1)
  - TYPE I HYPERSENSITIVITY [None]
